FAERS Safety Report 7927971-0 (Version None)
Quarter: 2011Q4

REPORT INFORMATION
  Report Type: 
  Country: None (occurrence: None)
  Receive Date: 20111116
  Receipt Date: 20111101
  Transmission Date: 20120403
  Serious: Yes (Other)
  Sender: FDA-Public Use
  Company Number: 2011S1006167

PATIENT
  Age: 84 Year
  Sex: Female

DRUGS (9)
  1. SODIUM PHOSPHATE MONOBASIC MONOHYDRATE AND NAPO4 DIBASIC ANHYDROUS [Suspect]
     Indication: COLONOSCOPY
     Dosage: 1 UNIT;X1;PO
     Route: 048
     Dates: start: 20090101, end: 20090101
  2. ASPIRIN [Concomitant]
  3. AMBIEN [Concomitant]
  4. RENAGEL [Concomitant]
  5. DIPENTUM [Suspect]
     Indication: COLITIS ULCERATIVE
     Dosage: 500 MG; BID;
     Dates: start: 20040101, end: 20090101
  6. TOPROL-XL [Concomitant]
  7. RENA-VITE [Concomitant]
  8. PREDNISONE TAB [Concomitant]
  9. GABAPENTIN [Concomitant]

REACTIONS (3)
  - PRODUCT QUALITY ISSUE [None]
  - DIALYSIS [None]
  - NEPHROCALCINOSIS [None]
